FAERS Safety Report 10279896 (Version 1)
Quarter: 2014Q3

REPORT INFORMATION
  Report Type: Spontaneous
  Country: GB (occurrence: None)
  Receive Date: 20140702
  Receipt Date: 20140702
  Transmission Date: 20150326
  Serious: Yes (Hospitalization)
  Sender: FDA-Public Use
  Company Number: AUR-APL-2014-06817

PATIENT
  Age: 26 Year
  Sex: Male
  Weight: 70.3 kg

DRUGS (1)
  1. TERBINAFINE [Suspect]
     Active Substance: TERBINAFINE
     Indication: TINEA PEDIS
     Dosage: 1 DF, TOTAL, ORAL
     Route: 048
     Dates: start: 20140213, end: 20140213

REACTIONS (2)
  - Haemangioma [None]
  - Convulsion [None]

NARRATIVE: CASE EVENT DATE: 20140214
